FAERS Safety Report 25240796 (Version 2)
Quarter: 2025Q2

REPORT INFORMATION
  Report Type: Report from Study
  Country: KR (occurrence: KR)
  Receive Date: 20250425
  Receipt Date: 20250528
  Transmission Date: 20250717
  Serious: Yes (Other)
  Sender: MERCK SHARP & DOHME LLC
  Company Number: KR-009507513-2279754

PATIENT
  Sex: Female

DRUGS (5)
  1. KEYTRUDA [Suspect]
     Active Substance: PEMBROLIZUMAB
     Indication: Bile duct cancer
     Dates: start: 20250218, end: 20250218
  2. KEYTRUDA [Suspect]
     Active Substance: PEMBROLIZUMAB
     Indication: Bile duct cancer
     Dates: start: 20250311, end: 20250311
  3. KEYTRUDA [Suspect]
     Active Substance: PEMBROLIZUMAB
     Indication: Bile duct cancer
     Dates: start: 20250404, end: 20250404
  4. KEYTRUDA [Suspect]
     Active Substance: PEMBROLIZUMAB
     Indication: Bile duct cancer
     Dates: start: 20250502, end: 20250502
  5. GEMCITABINE [Suspect]
     Active Substance: GEMCITABINE
     Indication: Bile duct cancer
     Dates: start: 20250218, end: 20250218

REACTIONS (3)
  - Red blood cell transfusion [Recovered/Resolved]
  - Inappropriate schedule of product administration [Unknown]
  - Inappropriate schedule of product administration [Unknown]

NARRATIVE: CASE EVENT DATE: 20250404
